FAERS Safety Report 12502921 (Version 3)
Quarter: 2016Q3

REPORT INFORMATION
  Report Type: Report from Study
  Country: UA (occurrence: UA)
  Receive Date: 20160628
  Receipt Date: 20160922
  Transmission Date: 20161109
  Serious: Yes (Life-Threatening)
  Sender: FDA-Public Use
  Company Number: UA-ROCHE-1644764

PATIENT
  Age: 49 Year
  Sex: Male

DRUGS (23)
  1. KETOROLAC [Concomitant]
     Active Substance: KETOROLAC\KETOROLAC TROMETHAMINE
     Indication: BACK PAIN
  2. NIMESULIDE [Concomitant]
     Active Substance: NIMESULIDE
     Indication: CHEST PAIN
     Route: 065
     Dates: start: 20150920, end: 20151201
  3. ASCORBIC ACID. [Concomitant]
     Active Substance: ASCORBIC ACID
     Indication: PROPHYLAXIS
     Dosage: INDICATION: PREVENTION OF ELECTROLYTE IMBALANCE DURING DIURETIC THERAPY
     Route: 065
     Dates: start: 20151009, end: 20151009
  4. PACLITAXEL. [Suspect]
     Active Substance: PACLITAXEL
     Indication: NON-SMALL CELL LUNG CANCER
     Dosage: RECEIVED MOST RECENT DOSE ON 08/OCT/2015
     Route: 042
     Dates: start: 20151008
  5. KETOROLAC [Concomitant]
     Active Substance: KETOROLAC\KETOROLAC TROMETHAMINE
     Indication: CHEST PAIN
     Route: 065
     Dates: start: 201507
  6. NALBUFIN [Concomitant]
     Indication: CHEST PAIN
     Route: 065
     Dates: start: 20150920, end: 20151013
  7. ESSENTIALE (PHOSPHOLIPID) [Concomitant]
     Indication: BLOOD LACTATE DEHYDROGENASE INCREASED
  8. ONDANSETRON [Concomitant]
     Active Substance: ONDANSETRON
     Indication: VOMITING
  9. RANITIDINE. [Concomitant]
     Active Substance: RANITIDINE
     Indication: NAUSEA
     Route: 065
     Dates: start: 20151009, end: 20151009
  10. NIMESULIDE [Concomitant]
     Active Substance: NIMESULIDE
     Indication: BACK PAIN
  11. ESSENTIALE (PHOSPHOLIPID) [Concomitant]
     Indication: ASPARTATE AMINOTRANSFERASE INCREASED
     Route: 065
     Dates: start: 20150930, end: 20151002
  12. RANITIDINE. [Concomitant]
     Active Substance: RANITIDINE
     Indication: VOMITING
  13. MAGNESIUM ASPARTATE/POTASSIUM ASPARTATE [Concomitant]
     Indication: PROPHYLAXIS
     Dosage: INDICATION: PREVENTION OF ELECTROLYTE IMBALANCE DURING DIURETIC THERAPY
     Route: 065
     Dates: start: 20151009, end: 20151009
  14. ONDANSETRON [Concomitant]
     Active Substance: ONDANSETRON
     Indication: PREMEDICATION
     Route: 065
     Dates: start: 20151008, end: 20160217
  15. ONDANSETRON [Concomitant]
     Active Substance: ONDANSETRON
     Indication: NAUSEA
     Route: 065
     Dates: start: 20151009, end: 20151009
  16. CARBOPLATIN. [Suspect]
     Active Substance: CARBOPLATIN
     Indication: NON-SMALL CELL LUNG CANCER
     Dosage: RECEIVED MOST RECENT DOSE ON 08/OCT/2015
     Route: 042
     Dates: start: 20151008
  17. RANITIDINE. [Concomitant]
     Active Substance: RANITIDINE
     Indication: PREMEDICATION
     Route: 065
     Dates: start: 20151008, end: 20160217
  18. ATEZOLIZUMAB [Suspect]
     Active Substance: ATEZOLIZUMAB
     Indication: NON-SMALL CELL LUNG CANCER
     Dosage: RECEIVED MOST RECENT DOSE ON 08/OCT/2015
     Route: 042
     Dates: start: 20151008
  19. NALBUFIN [Concomitant]
     Indication: BACK PAIN
  20. NOVOCAINE [Concomitant]
     Active Substance: PROCAINE
     Indication: ANAESTHESIA
     Dosage: INDICATION: ANESTHESIA DURING PLEURAL PUNCTURE
     Route: 065
     Dates: start: 20151006, end: 20151006
  21. SILYMARIN [Concomitant]
     Active Substance: MILK THISTLE
     Indication: BLOOD LACTATE DEHYDROGENASE INCREASED
  22. DIPHENHYDRAMINE. [Concomitant]
     Active Substance: DIPHENHYDRAMINE
     Indication: PREMEDICATION
     Route: 065
     Dates: start: 20151008, end: 20160217
  23. SILYMARIN [Concomitant]
     Active Substance: MILK THISTLE
     Indication: ASPARTATE AMINOTRANSFERASE INCREASED
     Route: 065
     Dates: start: 20151008, end: 20151210

REACTIONS (6)
  - Nausea [Recovered/Resolved]
  - Vomiting [Recovered/Resolved]
  - Hallucination [Recovered/Resolved]
  - Hypotension [Recovered/Resolved]
  - Urinary retention [Recovered/Resolved]
  - Pulmonary oedema [Recovered/Resolved]

NARRATIVE: CASE EVENT DATE: 20151009
